FAERS Safety Report 18430364 (Version 7)
Quarter: 2021Q3

REPORT INFORMATION
  Report Type: Report from Study
  Country: None (occurrence: NL)
  Receive Date: 20201027
  Receipt Date: 20210805
  Transmission Date: 20211014
  Serious: Yes (Hospitalization)
  Sender: FDA-Public Use
  Company Number: NL-ABBVIE-20K-114-3458467-00

PATIENT
  Age: 70 Year
  Sex: Female

DRUGS (9)
  1. MADOPAR [Concomitant]
     Active Substance: BENSERAZIDE HYDROCHLORIDE\LEVODOPA
     Indication: PRODUCT USED FOR UNKNOWN INDICATION
     Route: 048
     Dates: start: 20210725, end: 202107
  2. DUODOPA [Suspect]
     Active Substance: CARBIDOPA\LEVODOPA
     Dosage: DECREASED CD 2.7
     Route: 050
  3. DUODOPA [Suspect]
     Active Substance: CARBIDOPA\LEVODOPA
     Dosage: MD: 5.5 ML, CD: 2.9 ML/H, ED: 1.3 ML
     Route: 050
  4. DUODOPA [Suspect]
     Active Substance: CARBIDOPA\LEVODOPA
     Indication: PARKINSON^S DISEASE
     Route: 050
     Dates: start: 20171010
  5. DUODOPA [Suspect]
     Active Substance: CARBIDOPA\LEVODOPA
     Dosage: MD: 5.5 ML, CD: 2.8 ML/H, ED: 1.3 ML
     Route: 050
  6. MADOPAR [Concomitant]
     Active Substance: BENSERAZIDE HYDROCHLORIDE\LEVODOPA
     Dosage: EVERY 3 HOURS
     Route: 048
     Dates: start: 202107, end: 202107
  7. PRAMIPEXOL [Concomitant]
     Active Substance: PRAMIPEXOLE
     Indication: PRODUCT USED FOR UNKNOWN INDICATION
  8. DUODOPA [Suspect]
     Active Substance: CARBIDOPA\LEVODOPA
     Dosage: MD: 5.5, CD: 2.8, ED: 1.3
     Route: 050
  9. DUODOPA [Suspect]
     Active Substance: CARBIDOPA\LEVODOPA
     Dosage: DOSE INCREASED
     Route: 050

REACTIONS (33)
  - Dyschezia [Recovered/Resolved]
  - Stoma site erythema [Unknown]
  - Abnormal dreams [Recovering/Resolving]
  - Cognitive disorder [Not Recovered/Not Resolved]
  - Middle insomnia [Not Recovered/Not Resolved]
  - Hemianaesthesia [Recovered/Resolved]
  - General physical health deterioration [Not Recovered/Not Resolved]
  - Abnormal faeces [Unknown]
  - Medical device site discolouration [Unknown]
  - Dyspnoea [Not Recovered/Not Resolved]
  - Walking aid user [Unknown]
  - Device issue [Unknown]
  - Stress [Unknown]
  - Dyskinesia [Recovered/Resolved]
  - Drug ineffective [Not Recovered/Not Resolved]
  - Abnormal behaviour [Recovered/Resolved]
  - Emotional distress [Recovered/Resolved]
  - Oxygen saturation decreased [Not Recovered/Not Resolved]
  - Medical device site dryness [Unknown]
  - Gait disturbance [Not Recovered/Not Resolved]
  - Parkinson^s disease [Recovering/Resolving]
  - Loss of personal independence in daily activities [Not Recovered/Not Resolved]
  - Pleural effusion [Not Recovered/Not Resolved]
  - Medical device discomfort [Not Recovered/Not Resolved]
  - Therapeutic product effect variable [Unknown]
  - On and off phenomenon [Not Recovered/Not Resolved]
  - Device occlusion [Not Recovered/Not Resolved]
  - Drug level below therapeutic [Not Recovered/Not Resolved]
  - Balance disorder [Not Recovered/Not Resolved]
  - Musculoskeletal stiffness [Not Recovered/Not Resolved]
  - Fall [Not Recovered/Not Resolved]
  - Freezing phenomenon [Not Recovered/Not Resolved]
  - Restlessness [Not Recovered/Not Resolved]

NARRATIVE: CASE EVENT DATE: 20200623
